FAERS Safety Report 10974691 (Version 2)
Quarter: 2015Q2

REPORT INFORMATION
  Report Type: Spontaneous
  Country: BR (occurrence: BR)
  Receive Date: 20150401
  Receipt Date: 20150408
  Transmission Date: 20150821
  Serious: Yes (Other)
  Sender: FDA-Public Use
  Company Number: BR-PFIZER INC-2015110342

PATIENT
  Age: 61 Year
  Sex: Female
  Weight: 46 kg

DRUGS (11)
  1. CARBOLITIUM [Concomitant]
     Active Substance: LITHIUM CARBONATE
     Indication: BIPOLAR DISORDER
  2. RISS [Concomitant]
     Dosage: 2 MG, UNK
  3. GLIFAGE [Concomitant]
     Active Substance: METFORMIN HYDROCHLORIDE
     Indication: DIABETES MELLITUS
     Dosage: 500 MG, UNK
     Dates: start: 2005
  4. PURAN [Concomitant]
     Active Substance: LEVOTHYROXINE SODIUM
     Dosage: 50 ?G, UNK
  5. GEODON [Suspect]
     Active Substance: ZIPRASIDONE HYDROCHLORIDE\ZIPRASIDONE MESYLATE
     Indication: SCHIZOPHRENIA
     Dosage: 160 MG, 1X/DAY
     Route: 048
     Dates: start: 2014, end: 201502
  6. CARBOLITIUM [Concomitant]
     Active Substance: LITHIUM CARBONATE
     Indication: SCHIZOPHRENIA
     Dosage: 300 MG, UNK
     Dates: start: 2005
  7. GEODON [Interacting]
     Active Substance: ZIPRASIDONE HYDROCHLORIDE\ZIPRASIDONE MESYLATE
     Dosage: 80 MG, 1X/DAY
     Route: 048
     Dates: start: 201502
  8. CLONAZEPAM. [Concomitant]
     Active Substance: CLONAZEPAM
     Indication: SCHIZOPHRENIA
     Dosage: 25 MG/ML, UNK
     Dates: start: 2005
  9. ARADOIS [Concomitant]
     Active Substance: LOSARTAN POTASSIUM
     Indication: HYPERTENSION
     Dosage: 50 MG, UNK
     Dates: start: 2005, end: 201410
  10. RIVOTRIL [Interacting]
     Active Substance: CLONAZEPAM
     Indication: TENSION
     Dosage: UNK
     Dates: start: 2015, end: 2015
  11. CLONAZEPAM. [Concomitant]
     Active Substance: CLONAZEPAM
     Indication: BIPOLAR DISORDER

REACTIONS (18)
  - Sense of oppression [Not Recovered/Not Resolved]
  - Lip discolouration [Recovered/Resolved]
  - Drug interaction [Recovered/Resolved]
  - Tremor [Recovered/Resolved]
  - Constipation [Unknown]
  - Thanatophobia [Not Recovered/Not Resolved]
  - Asthenia [Recovering/Resolving]
  - Confusional state [Unknown]
  - Hallucination [Not Recovered/Not Resolved]
  - Fear [Not Recovered/Not Resolved]
  - Weight decreased [Recovering/Resolving]
  - Flatulence [Unknown]
  - Uterine leiomyoma [Unknown]
  - Tension [Unknown]
  - Hypothermia [Recovered/Resolved]
  - Hypothyroidism [Unknown]
  - Hypotension [Unknown]
  - Agitation [Unknown]

NARRATIVE: CASE EVENT DATE: 201408
